FAERS Safety Report 8474504-9 (Version None)
Quarter: 2012Q2

REPORT INFORMATION
  Report Type: 
  Country: None (occurrence: None)
  Receive Date: 20120628
  Receipt Date: 20120626
  Transmission Date: 20120825
  Serious: Yes (Death, Hospitalization, Other)
  Sender: FDA-Public Use
  Company Number: PHHY2011NL72172

PATIENT
  Sex: Male

DRUGS (10)
  1. ZOMETA [Suspect]
     Dosage: 4MG/5ML PER 28 DAYS
     Route: 042
     Dates: start: 20111004
  2. ZOMETA [Suspect]
     Dosage: 4MG/5ML PER 28 DAYS
     Route: 042
     Dates: start: 20111101
  3. ZOMETA [Suspect]
     Dosage: 4 MG/100 ML PER 28 DAYS
     Dates: start: 20120515
  4. ZOMETA [Suspect]
     Indication: PROSTATE CANCER
     Dosage: 4MG/5ML PER 28 DAYS
     Route: 042
     Dates: start: 20110419
  5. ZOMETA [Suspect]
     Dosage: 4MG/5ML PER 28 DAYS
     Route: 042
     Dates: start: 20110713
  6. ZOMETA [Suspect]
     Dosage: 4MG/5ML PER 28 DAYS
     Route: 042
     Dates: start: 20111129
  7. ZOMETA [Suspect]
     Dosage: 4 MG/100 ML PER 28 DAYS
     Dates: start: 20120612
  8. ZOMETA [Suspect]
     Dosage: 4 MG/100 ML PER 28 DAYS
     Dates: start: 20120124
  9. ZOMETA [Suspect]
     Dosage: 4MG/5ML PER 28 DAYS
     Route: 042
     Dates: start: 20110809
  10. ZOMETA [Suspect]
     Dosage: 4 MG/100 ML PER 28 DAYS
     Dates: start: 20120221

REACTIONS (9)
  - GENERAL PHYSICAL HEALTH DETERIORATION [None]
  - DIARRHOEA [None]
  - FLUID INTAKE REDUCED [None]
  - OROPHARYNGEAL PAIN [None]
  - PROSTATE CANCER [None]
  - DECREASED APPETITE [None]
  - HYPOPHAGIA [None]
  - MALAISE [None]
  - ABDOMINAL DISCOMFORT [None]
